FAERS Safety Report 7013796-X (Version None)
Quarter: 2010Q3

REPORT INFORMATION
  Report Type: 
  Country: None (occurrence: None)
  Receive Date: 20100924
  Receipt Date: 20100914
  Transmission Date: 20110219
  Serious: Yes (Hospitalization)
  Sender: FDA-Public Use
  Company Number: US-JNJCH-2010021448

PATIENT
  Age: 4 Year
  Sex: Male
  Weight: 18 kg

DRUGS (4)
  1. DIPHENHYDRAMINE HCL [Suspect]
     Indication: RASH
     Dosage: TEXT:7.5 CC THREE TIMES
     Route: 048
  2. ACETAMINOPHEN [Suspect]
     Indication: RASH
     Dosage: TEXT:UNKNOWN
     Route: 048
  3. DIPHENHYDRAMINE HCL [Suspect]
     Indication: PRURITUS
     Dosage: TEXT:UNKNOWN
     Route: 061
  4. CALADRYL [Suspect]
     Indication: PRURITUS
     Dosage: TEXT:FOUR TIMES
     Route: 061

REACTIONS (2)
  - DRUG TOXICITY [None]
  - OVERDOSE [None]
